FAERS Safety Report 10348796 (Version 3)
Quarter: 2014Q4

REPORT INFORMATION
  Report Type: Spontaneous
  Country: FR (occurrence: FR)
  Receive Date: 20140729
  Receipt Date: 20141110
  Transmission Date: 20150528
  Serious: Yes (Death, Hospitalization)
  Sender: FDA-Public Use
  Company Number: FR-ABBVIE-14P-056-1263960-00

PATIENT
  Age: 91 Year
  Sex: Male
  Weight: 60 kg

DRUGS (2)
  1. ENANTONE LP [Suspect]
     Active Substance: LEUPROLIDE ACETATE
     Indication: METASTASES TO BONE
  2. ENANTONE LP [Suspect]
     Active Substance: LEUPROLIDE ACETATE
     Indication: PROSTATE CANCER
     Route: 058
     Dates: start: 201004, end: 2014

REACTIONS (17)
  - Bronchopneumopathy [Unknown]
  - International normalised ratio increased [Unknown]
  - Decreased appetite [Unknown]
  - Jaundice [Unknown]
  - Hepatocellular injury [Unknown]
  - Hepatitis [Not Recovered/Not Resolved]
  - Dyspnoea [Unknown]
  - Oxygen saturation decreased [Unknown]
  - Pain [Unknown]
  - Constipation [Unknown]
  - Hyperthermia [Unknown]
  - Drug-induced liver injury [Unknown]
  - Fatigue [Unknown]
  - Anxiety [Unknown]
  - Hypotension [Unknown]
  - Hepatocellular injury [Fatal]
  - General physical health deterioration [Unknown]

NARRATIVE: CASE EVENT DATE: 2014
